FAERS Safety Report 5304338-5 (Version None)
Quarter: 2007Q2

REPORT INFORMATION
  Report Type: 
  Country: None (occurrence: None)
  Receive Date: 20070423
  Receipt Date: 20070416
  Transmission Date: 20071010
  Serious: Yes (Hospitalization, Other)
  Sender: FDA-Public Use
  Company Number: PHEH2006US08358

PATIENT
  Age: 48 Year
  Sex: Female
  Weight: 95.691 kg

DRUGS (8)
  1. ZELNORM [Suspect]
     Indication: CONSTIPATION
     Dosage: 6 MG, BID
     Route: 048
     Dates: start: 20051213, end: 20060105
  2. PERCOCET [Concomitant]
     Indication: INTERVERTEBRAL DISC DEGENERATION
     Dosage: 10/ 650  PRN
     Route: 048
     Dates: start: 19970101
  3. IBUPROFEN [Concomitant]
     Indication: INTERVERTEBRAL DISC DEGENERATION
     Dosage: 800 UNK, PRN
     Route: 048
  4. SKELAXIN [Concomitant]
     Indication: INTERVERTEBRAL DISC DEGENERATION
     Dosage: 800 UNK, PRN
     Route: 048
  5. PAXIL [Concomitant]
     Indication: DEPRESSION
     Dosage: 20 MG, QD
     Route: 048
     Dates: start: 19970101
  6. DIAZEPAM [Concomitant]
     Indication: PAIN
  7. MIRALAX [Concomitant]
  8. VALTREX [Concomitant]
     Indication: MIGRAINE

REACTIONS (20)
  - ABASIA [None]
  - ALOPECIA [None]
  - AMNESIA [None]
  - ARTHRALGIA [None]
  - DISABILITY [None]
  - FATIGUE [None]
  - FIBROMYALGIA [None]
  - INJURY [None]
  - MALAISE [None]
  - MYALGIA [None]
  - OEDEMA PERIPHERAL [None]
  - PAIN [None]
  - PAIN IN EXTREMITY [None]
  - PHYSIOTHERAPY [None]
  - SCAR [None]
  - SKIN ULCER [None]
  - SPINAL OSTEOARTHRITIS [None]
  - TRAUMATIC BRAIN INJURY [None]
  - WALKING AID USER [None]
  - WEIGHT INCREASED [None]
